FAERS Safety Report 13062865 (Version 2)
Quarter: 2016Q4

REPORT INFORMATION
  Report Type: Report from Study
  Country: PK (occurrence: PK)
  Receive Date: 20161226
  Receipt Date: 20161229
  Transmission Date: 20170207
  Serious: Yes (Other)
  Sender: FDA-Public Use
  Company Number: PHHY2016PK175600

PATIENT
  Sex: Female
  Weight: 59 kg

DRUGS (1)
  1. TASIGNA [Suspect]
     Active Substance: NILOTINIB
     Indication: CHRONIC MYELOID LEUKAEMIA
     Dosage: 3 DF, QD (200 MG 3 CAPSULES IN A DAY/ 600MG PER DAY)
     Route: 048
     Dates: start: 20160709, end: 20161216

REACTIONS (2)
  - Angina pectoris [Unknown]
  - Angina unstable [Unknown]
